FAERS Safety Report 11988281 (Version 2)
Quarter: 2016Q1

REPORT INFORMATION
  Report Type: Spontaneous
  Country: IN (occurrence: IN)
  Receive Date: 20160202
  Receipt Date: 20160205
  Transmission Date: 20160526
  Serious: Yes (Death, Other)
  Sender: FDA-Public Use
  Company Number: IN-SA-2016SA017175

PATIENT
  Age: 11 Year
  Sex: Female

DRUGS (1)
  1. CEREZYME [Suspect]
     Active Substance: IMIGLUCERASE
     Indication: GAUCHER^S DISEASE TYPE III
     Route: 041

REACTIONS (4)
  - General physical health deterioration [Unknown]
  - Ataxia [Unknown]
  - Seizure [Fatal]
  - Aspiration [Unknown]

NARRATIVE: CASE EVENT DATE: 20160117
